FAERS Safety Report 18010313 (Version 1)
Quarter: 2020Q3

REPORT INFORMATION
  Report Type: Spontaneous
  Country: IT (occurrence: IT)
  Receive Date: 20200710
  Receipt Date: 20200710
  Transmission Date: 20201103
  Serious: Yes (Other)
  Sender: FDA-Public Use
  Company Number: NVSC2020IT181658

PATIENT
  Age: 49 Year
  Sex: Male

DRUGS (4)
  1. CAPECITABINE. [Suspect]
     Active Substance: CAPECITABINE
     Indication: ACINAR CELL CARCINOMA OF PANCREAS
     Dosage: 1300 MG/M2, CYCLIC (ADMINISTERED FOR 22 CYCLES)
     Route: 065
     Dates: start: 201001, end: 201204
  2. OXALIPLATIN. [Suspect]
     Active Substance: OXALIPLATIN
     Indication: ACINAR CELL CARCINOMA OF PANCREAS
     Dosage: UNK
     Route: 065
     Dates: end: 200910
  3. CAPECITABINE. [Suspect]
     Active Substance: CAPECITABINE
     Dosage: UNK
     Route: 065
     Dates: end: 201507
  4. GEMCITABINE. [Suspect]
     Active Substance: GEMCITABINE
     Indication: ACINAR CELL CARCINOMA OF PANCREAS
     Dosage: 1000 MG/M2, CYCLIC (ADMINISTERED ON DAY 1 AND 8 EVERY 14 DAYS FOR 22 CYCLES)
     Route: 065
     Dates: end: 201204

REACTIONS (4)
  - Neutropenia [Unknown]
  - Anaemia [Unknown]
  - Neuropathy peripheral [Unknown]
  - Myelosuppression [Unknown]
